FAERS Safety Report 15986129 (Version 2)
Quarter: 2019Q1

REPORT INFORMATION
  Report Type: Spontaneous
  Country: US (occurrence: US)
  Receive Date: 20190220
  Receipt Date: 20190225
  Transmission Date: 20190418
  Serious: Yes (Hospitalization)
  Sender: FDA-Public Use
  Company Number: US-PFIZER INC-2019071382

PATIENT
  Age: 49 Year
  Sex: Female

DRUGS (4)
  1. METRONIDAZOLE. [Suspect]
     Active Substance: METRONIDAZOLE
     Indication: BACTERIAL VAGINOSIS
     Dosage: 500 MG, 3X/DAY (WHICH SHE TOOK 4 TO 5 TIMES PER WEEK OVER THE COURSE OF 2 MONTHS, 48 TO 60 G OF MET)
     Route: 048
  2. AZITHROMYCIN ANHYDROUS. [Concomitant]
     Active Substance: AZITHROMYCIN ANHYDROUS
     Indication: OROPHARYNGEAL PAIN
     Dosage: UNK
  3. METRONIDAZOLE. [Suspect]
     Active Substance: METRONIDAZOLE
     Indication: BACTERIAL VAGINOSIS
     Dosage: 500 MG, SINGLE  (ONE DOSE OF INTRAVENOUS METRONIDAZOLE)
     Route: 042
  4. IBUPROFEN. [Concomitant]
     Active Substance: IBUPROFEN
     Indication: MYALGIA
     Dosage: UNK (UNSPECIFIED REGIMEN)

REACTIONS (2)
  - Aplastic anaemia [Recovering/Resolving]
  - Product use issue [Unknown]
